FAERS Safety Report 25374702 (Version 1)
Quarter: 2025Q2

REPORT INFORMATION
  Report Type: Spontaneous
  Country: US (occurrence: US)
  Receive Date: 20250529
  Receipt Date: 20250529
  Transmission Date: 20250716
  Serious: Yes (Other)
  Sender: FERRING
  Company Number: US-FERRINGPH-2025FE02675

PATIENT

DRUGS (1)
  1. ADSTILADRIN [Suspect]
     Active Substance: NADOFARAGENE FIRADENOVEC-VNCG
     Indication: Product used for unknown indication
     Route: 065
     Dates: start: 202503

REACTIONS (1)
  - Metastasis [Not Recovered/Not Resolved]

NARRATIVE: CASE EVENT DATE: 20250101
